FAERS Safety Report 20207736 (Version 2)
Quarter: 2022Q1

REPORT INFORMATION
  Report Type: Spontaneous
  Country: JP (occurrence: JP)
  Receive Date: 20211220
  Receipt Date: 20220207
  Transmission Date: 20220424
  Serious: Yes (Other)
  Sender: FDA-Public Use
  Company Number: JP-OTSUKA-2016_008071AA

PATIENT
  Age: 62 Year
  Sex: Female

DRUGS (11)
  1. SAMSCA [Suspect]
     Active Substance: TOLVAPTAN
     Indication: Congenital cystic kidney disease
     Dosage: 60 MG, DAILY DOSE
     Route: 048
     Dates: start: 20151201, end: 20160407
  2. SAMSCA [Suspect]
     Active Substance: TOLVAPTAN
     Dosage: 15 MG, DAILY DOSE
     Route: 048
     Dates: start: 20160728, end: 20160901
  3. SAMSCA [Suspect]
     Active Substance: TOLVAPTAN
     Indication: Congenital cystic kidney disease
     Dosage: UNK
     Route: 065
     Dates: start: 20161206
  4. SAMSCA [Suspect]
     Active Substance: TOLVAPTAN
     Dosage: 7.5 (UNIT NOT PROVIDED), UNK
     Route: 065
  5. SAMSCA [Suspect]
     Active Substance: TOLVAPTAN
     Dosage: 60 (UNIT NOT PROVIDED), UNK
     Route: 065
     Dates: end: 20170627
  6. MICARDIS [Concomitant]
     Active Substance: TELMISARTAN
     Indication: Product used for unknown indication
     Dosage: 1 TABLET, QD(AFTER BREAKFST)
     Route: 065
     Dates: start: 20160407
  7. MICARDIS [Concomitant]
     Active Substance: TELMISARTAN
     Dosage: 1 TABLET, QD(AFTER BREAKFST)
     Route: 065
     Dates: start: 20160728
  8. PITAVASTATIN CALCIUM [Concomitant]
     Active Substance: PITAVASTATIN CALCIUM
     Indication: Product used for unknown indication
     Dosage: 0.5 TABLET, QD, AFTER DINNER
     Route: 065
     Dates: start: 20160407
  9. PITAVASTATIN CALCIUM [Concomitant]
     Active Substance: PITAVASTATIN CALCIUM
     Dosage: 0.5 TABLET, QD, AFTER DINNER
     Route: 065
     Dates: start: 20160728
  10. GOODMIN [Concomitant]
     Active Substance: BROTIZOLAM
     Indication: Insomnia
     Dosage: 1 TABLET, AT THE TIME OF SLEEPLESSNESS, FOR SEVEN TIMES
     Route: 065
     Dates: start: 20160407
  11. GOODMIN [Concomitant]
     Active Substance: BROTIZOLAM
     Dosage: 1 TABLET, AT THE TIME OF SLEEPLESSNESS, FOR TEN TIMES
     Route: 065
     Dates: start: 20160728

REACTIONS (2)
  - Hepatic function abnormal [Recovering/Resolving]
  - Liver disorder [Recovered/Resolved]

NARRATIVE: CASE EVENT DATE: 20160407
